FAERS Safety Report 6947104-7 (Version None)
Quarter: 2010Q3

REPORT INFORMATION
  Report Type: 
  Country: None (occurrence: None)
  Receive Date: 20100827
  Receipt Date: 20090820
  Transmission Date: 20110219
  Serious: No
  Sender: FDA-Public Use
  Company Number: US-ABBOTT-09P-163-0593900-00

PATIENT
  Sex: Female
  Weight: 73.548 kg

DRUGS (3)
  1. NIASPAN [Suspect]
     Indication: BLOOD CHOLESTEROL INCREASED
     Dates: start: 20090101, end: 20090806
  2. NIASPAN [Suspect]
     Dates: start: 20090806, end: 20090818
  3. BENICAR [Concomitant]
     Indication: HYPERTENSION

REACTIONS (6)
  - DRUG DOSE OMISSION [None]
  - ERYTHEMA [None]
  - FEELING ABNORMAL [None]
  - FEELING HOT [None]
  - FLUSHING [None]
  - PRURITUS [None]
